FAERS Safety Report 8018741-6 (Version None)
Quarter: 2012Q1

REPORT INFORMATION
  Report Type: 
  Country: None (occurrence: None)
  Receive Date: 20120103
  Receipt Date: 20120103
  Transmission Date: 20120608
  Serious: Yes (Hospitalization)
  Sender: FDA-Public Use
  Company Number: None

PATIENT
  Age: 94 Year
  Sex: Female
  Weight: 52 kg

DRUGS (10)
  1. CILOSTAZOL [Concomitant]
     Route: 048
  2. HYDROCHLOROTHIAZIDE [Concomitant]
     Route: 048
  3. PHENYTOIN [Concomitant]
     Route: 048
  4. OMEPRAZOLE [Concomitant]
     Route: 048
  5. ENALAPRIL MALEATE [Suspect]
     Indication: HYPERTENSION
     Dosage: 20 MG
     Route: 048
  6. SIMVASTATIN [Concomitant]
     Route: 048
  7. TRIAMCINOLONE CREAM 0.1% [Concomitant]
     Route: 061
  8. ASPIRIN [Concomitant]
     Route: 048
  9. CLOBETASOL TOPICAL LOTION 0.05% [Concomitant]
     Route: 061
  10. RALOXIFENE HCL [Concomitant]
     Route: 048

REACTIONS (6)
  - HYPONATRAEMIA [None]
  - DRUG HYPERSENSITIVITY [None]
  - HYPOTENSION [None]
  - SWELLING FACE [None]
  - ASTHENIA [None]
  - PRESYNCOPE [None]
